FAERS Safety Report 24573755 (Version 4)
Quarter: 2025Q1

REPORT INFORMATION
  Report Type: Report from Study
  Country: US (occurrence: US)
  Receive Date: 20241103
  Receipt Date: 20250314
  Transmission Date: 20250409
  Serious: Yes (Other)
  Sender: UCB
  Company Number: US-UCBSA-2024056289

PATIENT
  Age: 12 Year
  Sex: Female
  Weight: 36.3 kg

DRUGS (3)
  1. FINTEPLA [Suspect]
     Active Substance: FENFLURAMINE
     Indication: Lennox-Gastaut syndrome
     Dosage: 4.5 MILLILITER, 2X/DAY (BID)
     Dates: start: 20230310
  2. FINTEPLA [Suspect]
     Active Substance: FENFLURAMINE
  3. FINTEPLA [Suspect]
     Active Substance: FENFLURAMINE
     Dosage: 4.5 MILLILITER, 2X/DAY (BID)

REACTIONS (2)
  - Mitral valve incompetence [Unknown]
  - Drug ineffective [Unknown]

NARRATIVE: CASE EVENT DATE: 20241022
